FAERS Safety Report 7113414-6 (Version None)
Quarter: 2010Q4

REPORT INFORMATION
  Report Type: 
  Country: None (occurrence: None)
  Receive Date: 20101119
  Receipt Date: 20100810
  Transmission Date: 20110411
  Serious: No
  Sender: FDA-Public Use
  Company Number: A0876795A

PATIENT
  Age: 79 Year
  Sex: Female

DRUGS (1)
  1. ARZERRA [Suspect]
     Indication: LYMPHOMA
     Route: 042
     Dates: start: 20100809, end: 20100809

REACTIONS (4)
  - BACK PAIN [None]
  - CHEST PAIN [None]
  - DYSPNOEA [None]
  - PARAESTHESIA [None]
